FAERS Safety Report 13053563 (Version 6)
Quarter: 2018Q3

REPORT INFORMATION
  Report Type: Spontaneous
  Country: US (occurrence: US)
  Receive Date: 20161222
  Receipt Date: 20180830
  Transmission Date: 20181010
  Serious: Yes (Other)
  Sender: FDA-Public Use
  Company Number: PHHY2016US176264

PATIENT
  Sex: Female
  Weight: 63.5 kg

DRUGS (1)
  1. ZOFRAN ODT [Suspect]
     Active Substance: ONDANSETRON HYDROCHLORIDE
     Indication: VOMITING IN PREGNANCY
     Dosage: 8 MG, UNK
     Route: 048
     Dates: start: 20030601, end: 20040201

REACTIONS (4)
  - Maternal exposure during pregnancy [Unknown]
  - Stress [Unknown]
  - Product use in unapproved indication [Unknown]
  - Perinatal depression [Unknown]
